FAERS Safety Report 16687204 (Version 1)
Quarter: 2019Q3

REPORT INFORMATION
  Report Type: Spontaneous
  Country: US (occurrence: US)
  Receive Date: 20190808
  Receipt Date: 20190808
  Transmission Date: 20191007
  Serious: No
  Sender: FDA-Public Use
  Company Number: None

PATIENT
  Age: 48 Year
  Sex: Female
  Weight: 70.2 kg

DRUGS (2)
  1. PAROXETINE HCL 20 MG TABLET IC PARAXETINE HCI F/C ROUND WHITE ZC 16 [Suspect]
     Active Substance: PAROXETINE HYDROCHLORIDE
     Indication: NIGHT SWEATS
     Dosage: ?          QUANTITY:1 TABLET(S);?
     Route: 048
     Dates: start: 20190125, end: 20190731
  2. PAROXETINE HCL 20 MG TABLET IC PARAXETINE HCI F/C ROUND WHITE ZC 16 [Suspect]
     Active Substance: PAROXETINE HYDROCHLORIDE
     Indication: MENOPAUSE
     Dosage: ?          QUANTITY:1 TABLET(S);?
     Route: 048
     Dates: start: 20190125, end: 20190731

REACTIONS (7)
  - Amnesia [None]
  - Hyperhidrosis [None]
  - Tremor [None]
  - Paraesthesia [None]
  - Dizziness [None]
  - Weight increased [None]
  - Insomnia [None]

NARRATIVE: CASE EVENT DATE: 20190731
